FAERS Safety Report 16199664 (Version 2)
Quarter: 2019Q2

REPORT INFORMATION
  Report Type: Spontaneous
  Country: JP (occurrence: JP)
  Receive Date: 20190415
  Receipt Date: 20190422
  Transmission Date: 20190711
  Serious: Yes (Death, Life-Threatening, Other)
  Sender: FDA-Public Use
  Company Number: JP-PFIZER INC-2019060354

PATIENT
  Age: 8 Decade
  Sex: Female
  Weight: 66.9 kg

DRUGS (3)
  1. LIXIANA [Concomitant]
     Active Substance: EDOXABAN TOSYLATE
     Dosage: UNK
     Route: 048
  2. BESPONSA [Suspect]
     Active Substance: INOTUZUMAB OZOGAMICIN
     Indication: ACUTE LYMPHOCYTIC LEUKAEMIA
     Dosage: 0.8 MG/M2, 1X/DAY
     Route: 041
     Dates: start: 20190128, end: 20190128
  3. BESPONSA [Suspect]
     Active Substance: INOTUZUMAB OZOGAMICIN
     Dosage: 0.5 MG/M2, UNK
     Dates: start: 20190307, end: 20190307

REACTIONS (4)
  - Melaena [Recovered/Resolved]
  - Pseudomonal bacteraemia [Recovered/Resolved]
  - Infection [Fatal]
  - White blood cell count decreased [Unknown]

NARRATIVE: CASE EVENT DATE: 20190201
